FAERS Safety Report 18175815 (Version 1)
Quarter: 2020Q3

REPORT INFORMATION
  Report Type: Spontaneous
  Country: NL (occurrence: AU)
  Receive Date: 20200820
  Receipt Date: 20200820
  Transmission Date: 20201103
  Serious: Yes (Other)
  Sender: FDA-Public Use
  Company Number: AU-ENDO PHARMACEUTICALS INC-2020-005531

PATIENT
  Age: 44 Year
  Sex: Female

DRUGS (1)
  1. AVEED [Suspect]
     Active Substance: TESTOSTERONE UNDECANOATE
     Indication: TRANSGENDER HORMONAL THERAPY
     Dosage: 1000 MG, Q12W
     Route: 030
     Dates: start: 201808, end: 201812

REACTIONS (3)
  - Invasive ductal breast carcinoma [Unknown]
  - Suicidal ideation [Unknown]
  - Off label use [Unknown]
